FAERS Safety Report 6188939-0 (Version None)
Quarter: 2009Q2

REPORT INFORMATION
  Report Type: 
  Country: None (occurrence: None)
  Receive Date: 20090513
  Receipt Date: 20090506
  Transmission Date: 20091009
  Serious: Yes (Hospitalization)
  Sender: FDA-Public Use
  Company Number: FR-WYE-G03636209

PATIENT
  Age: 6 Year

DRUGS (1)
  1. ADVIL [Suspect]
     Indication: EAR INFECTION
     Dosage: UNKNOWN

REACTIONS (1)
  - NONSPECIFIC REACTION [None]
